FAERS Safety Report 18499644 (Version 1)
Quarter: 2020Q4

REPORT INFORMATION
  Report Type: Spontaneous
  Country: US (occurrence: US)
  Receive Date: 20201113
  Receipt Date: 20201113
  Transmission Date: 20210114
  Serious: Yes (Hospitalization, Other)
  Sender: FDA-Public Use
  Company Number: US-LUPIN PHARMACEUTICALS INC.-2020-08735

PATIENT
  Age: 87 Year
  Sex: Male

DRUGS (4)
  1. LIDOCAINE. [Concomitant]
     Active Substance: LIDOCAINE
     Indication: VEHICLE SOLUTION USE
     Dosage: AN L4-L5 INTERLAMINAR EPIDURAL STEROID INJECTION (ESI) WAS PERFORMED, USING A TOTAL INJECTATE VOLUME
     Route: 008
  2. BETAMETHASONE. [Suspect]
     Active Substance: BETAMETHASONE
     Indication: PAIN
     Dosage: AN L4-L5 INTERLAMINAR EPIDURAL STEROID INJECTION (ESI) WAS PERFORMED, USING A TOTAL INJECTATE VOLUME
     Route: 008
  3. OMNIPAQUE [Concomitant]
     Active Substance: IOHEXOL
     Indication: SCAN WITH CONTRAST
     Dosage: 240 MGI/ML
     Route: 065
  4. DEXAMETHASONE. [Suspect]
     Active Substance: DEXAMETHASONE
     Indication: EVIDENCE BASED TREATMENT
     Dosage: 10 MILLIGRAM
     Route: 065

REACTIONS (3)
  - Paralysis [Recovered/Resolved]
  - Urinary retention [Recovered/Resolved]
  - Urinary incontinence [Recovered/Resolved]
